FAERS Safety Report 9474319 (Version 2)
Quarter: 2013Q3

REPORT INFORMATION
  Report Type: Spontaneous
  Country: AT (occurrence: AT)
  Receive Date: 20130823
  Receipt Date: 20130823
  Transmission Date: 20140515
  Serious: Yes (Other)
  Sender: FDA-Public Use
  Company Number: AT-BAYER-2013-078609

PATIENT
  Sex: Female
  Weight: 93 kg

DRUGS (1)
  1. MIRENA [Suspect]
     Dosage: UNK
     Dates: start: 2011

REACTIONS (4)
  - Ectopic pregnancy with contraceptive device [None]
  - Abortion of ectopic pregnancy [None]
  - Drug ineffective [None]
  - Intra-abdominal haemorrhage [None]
